FAERS Safety Report 21014698 (Version 1)
Quarter: 2022Q2

REPORT INFORMATION
  Report Type: Spontaneous
  Country: US (occurrence: US)
  Receive Date: 20220628
  Receipt Date: 20220628
  Transmission Date: 20220721
  Serious: Yes (Hospitalization, Other)
  Sender: FDA-Public Use
  Company Number: US-BRISTOL-MYERS SQUIBB COMPANY-2022-060201

PATIENT
  Age: 82 Year
  Sex: Female

DRUGS (5)
  1. REVLIMID [Suspect]
     Active Substance: LENALIDOMIDE
     Indication: Monoclonal gammopathy
     Dosage: DAILYX21 DAYS
     Route: 048
     Dates: start: 20220519, end: 20220610
  2. REVLIMID [Suspect]
     Active Substance: LENALIDOMIDE
     Dosage: CAPSULE 28S
     Dates: start: 20220518
  3. ALBUTEROL SULFATE [Concomitant]
     Active Substance: ALBUTEROL SULFATE
     Dosage: (200 PUFFS) 8.5 GM.?INHSLE 2 PUFFSBY MOUTH EVERY 6 HOURS AS NEEDED FOR WHEEZING.
  4. AMOXICILLIN\CLAVULANATE POTASSIUM [Concomitant]
     Active Substance: AMOXICILLIN\CLAVULANATE POTASSIUM
     Dosage: TAKE 1 TABLET BY MOUTH TWICE DAILY FOR 10 DAYS
  5. BENZONATATE [Concomitant]
     Active Substance: BENZONATATE
     Dosage: TAKE 1 CAPSULE BY MOUTH AT BEDTIME AS NEEDED. FOR COUGH DO NOT CRUSH OR CHEW

REACTIONS (3)
  - Cough [Unknown]
  - Cerebrovascular accident [Unknown]
  - Off label use [Unknown]

NARRATIVE: CASE EVENT DATE: 20220610
